FAERS Safety Report 8388442-3 (Version None)
Quarter: 2012Q2

REPORT INFORMATION
  Report Type: 
  Country: None (occurrence: None)
  Receive Date: 20120525
  Receipt Date: 20120514
  Transmission Date: 20120825
  Serious: Yes (Other)
  Sender: FDA-Public Use
  Company Number: US-ELI_LILLY_AND_COMPANY-US201205005655

PATIENT
  Sex: Female
  Weight: 47 kg

DRUGS (7)
  1. SOMA [Concomitant]
     Indication: BACK DISORDER
     Dosage: 350 MG, TID
  2. VISTARIL                           /00058403/ [Concomitant]
     Indication: PANIC ATTACK
  3. ANTIDEPRESSANTS [Concomitant]
     Indication: DEPRESSION
  4. PROZAC [Suspect]
     Indication: DEPRESSION
  5. XANAX [Concomitant]
     Dosage: 2 MG, TID
     Route: 048
  6. XANAX [Concomitant]
     Indication: PANIC ATTACK
     Route: 048
  7. VALIUM [Concomitant]
     Indication: DEPRESSION

REACTIONS (10)
  - ROAD TRAFFIC ACCIDENT [None]
  - ANXIETY [None]
  - SUICIDAL IDEATION [None]
  - PANIC ATTACK [None]
  - INSOMNIA [None]
  - DRUG INEFFECTIVE [None]
  - NERVOUSNESS [None]
  - FEAR [None]
  - SHOCK [None]
  - INTENTIONAL DRUG MISUSE [None]
